FAERS Safety Report 9718511 (Version 1)
Quarter: 2013Q4

REPORT INFORMATION
  Report Type: Spontaneous
  Country: US (occurrence: US)
  Receive Date: 20131125
  Receipt Date: 20131125
  Transmission Date: 20140711
  Serious: No
  Sender: FDA-Public Use
  Company Number: US-VIVUS-2013V1000705

PATIENT
  Age: 53 Year
  Sex: Female
  Weight: 128.94 kg

DRUGS (4)
  1. QSYMIA 3.75MG/23MG [Suspect]
     Indication: WEIGHT DECREASED
     Route: 048
     Dates: start: 20130810, end: 20130816
  2. QSYMIA 3.75MG/23MG [Suspect]
     Route: 048
     Dates: start: 20130911, end: 20130911
  3. SYNTHROID [Concomitant]
     Indication: HYPOTHYROIDISM
     Dates: start: 1983, end: 201308
  4. SYNTHROID [Concomitant]
     Dates: start: 201308

REACTIONS (2)
  - Eye pain [Not Recovered/Not Resolved]
  - Drug dose omission [Not Recovered/Not Resolved]
